FAERS Safety Report 14352370 (Version 41)
Quarter: 2023Q1

REPORT INFORMATION
  Report Type: Spontaneous
  Country: GB (occurrence: GB)
  Receive Date: 20180104
  Receipt Date: 20230124
  Transmission Date: 20230418
  Serious: Yes (Other)
  Sender: FDA-Public Use
  Company Number: GB-BAXTER-2017BAX039110

PATIENT
  Age: 73 Year
  Sex: Female
  Weight: 50 kg

DRUGS (171)
  1. FENTANYL [Suspect]
     Active Substance: FENTANYL
     Indication: Product used for unknown indication
     Dosage: 12 MICROGRAM, QH (START DATE:08-NOV-2017)
     Route: 062
  2. FENTANYL [Suspect]
     Active Substance: FENTANYL
     Dosage: 10 MILLIGRAM
     Route: 062
  3. FENTANYL [Suspect]
     Active Substance: FENTANYL
     Dosage: 12 MICROGRAM, UNK, EVERY 1HR (START DATE 08-NOV-17)
     Route: 065
  4. FENTANYL [Suspect]
     Active Substance: FENTANYL
     Dosage: 12 UG, (START DATE: 08-NOV-2017)
     Route: 062
  5. FENTANYL [Suspect]
     Active Substance: FENTANYL
     Dosage: 12 MILLIGRAM, QH, (1 IN 1 HOUR, START DATE: 08-NOV-2017)
     Route: 062
  6. FENTANYL [Suspect]
     Active Substance: FENTANYL
     Dosage: UNK, Q1HR, (START DATE: 08-NOV-2017)
     Route: 062
  7. FENTANYL [Suspect]
     Active Substance: FENTANYL
     Dosage: UNK, (START DATE:08-NOV-2017)
     Route: 062
  8. METOCLOPRAMIDE [Suspect]
     Active Substance: METOCLOPRAMIDE
     Indication: Product used for unknown indication
     Dosage: 10 MG, QD (AS NECESSARY MEDICATION ERROR, MISUSE, ABUSE, OFF LABEL USE)
     Route: 065
  9. METOCLOPRAMIDE [Suspect]
     Active Substance: METOCLOPRAMIDE
     Dosage: 10 MG, PRN (AS NECESSARY)
     Route: 065
  10. METOCLOPRAMIDE [Suspect]
     Active Substance: METOCLOPRAMIDE
     Dosage: 20 MILLIGRAM, QD
     Route: 065
  11. SERTRALINE [Suspect]
     Active Substance: SERTRALINE HYDROCHLORIDE
     Indication: Product used for unknown indication
     Dosage: 5 MILLIGRAM, QD, (ONCE A DAY)
     Route: 065
  12. SERTRALINE [Suspect]
     Active Substance: SERTRALINE HYDROCHLORIDE
     Dosage: 50 MG, QD, 50 MG, QD (EVERY MORNING)
     Route: 065
  13. OMEPRAZOLE [Suspect]
     Active Substance: OMEPRAZOLE
     Indication: Product used for unknown indication
     Dosage: 20 MILLIGRAM, (ONCE A DAY, UNSPECIFIED, EVERY MORNING)
     Route: 048
  14. OMEPRAZOLE [Suspect]
     Active Substance: OMEPRAZOLE
     Dosage: 20 MILLIGRAM, (ONCE A DAY, UNSPECIFIED, EVERY MORNING)
     Route: 065
  15. OMEPRAZOLE [Suspect]
     Active Substance: OMEPRAZOLE
     Dosage: 20 MILLIGRAM, QD  (UNSPECIFIED, EVERY MORNING)
     Route: 065
  16. OMEPRAZOLE [Suspect]
     Active Substance: OMEPRAZOLE
     Dosage: 20 MILLIGRAM, QD  (ONCE A DAY)
     Route: 048
  17. OMEPRAZOLE [Suspect]
     Active Substance: OMEPRAZOLE
     Dosage: 10 MILLIGRAM, QD
     Route: 048
  18. OMEPRAZOLE [Suspect]
     Active Substance: OMEPRAZOLE
     Dosage: 20 MILLIGRAM, (ONCE A DAY, UNSPECIFIED, EVERY MORNING)
     Route: 065
  19. RAMIPRIL [Suspect]
     Active Substance: RAMIPRIL
     Indication: Product used for unknown indication
     Dosage: 10 MG, QD (ONCE A DAY UNSPESIFIED DOSAGE FORM EVERY MORNING)
     Route: 065
  20. RAMIPRIL [Suspect]
     Active Substance: RAMIPRIL
     Dosage: 10 MILLIGRAM, (ONCE A DAY, EVERY MORNING)
     Route: 048
  21. RAMIPRIL [Suspect]
     Active Substance: RAMIPRIL
     Dosage: 10 MG, QD (ONCE A DAY UNSPESIFIED DOSAGE FORM EVERY MORNING)
     Route: 065
  22. RAMIPRIL [Suspect]
     Active Substance: RAMIPRIL
     Dosage: 10 MG, QD (ONCE A DAY UNSPESIFIED DOSAGE FORM EVERY MORNING)
     Route: 065
  23. METOCLOPRAMIDE [Suspect]
     Active Substance: METOCLOPRAMIDE
     Indication: Product used for unknown indication
     Dosage: 10 MILLIGRAM, PRN, (AS NECESSARY)
     Route: 065
  24. SODIUM CHLORIDE [Suspect]
     Active Substance: SODIUM CHLORIDE
     Indication: Medication dilution
     Dosage: UNK, 1 CYCLE
     Route: 042
     Dates: start: 20171103, end: 20171106
  25. SODIUM CHLORIDE [Suspect]
     Active Substance: SODIUM CHLORIDE
     Dosage: UNK UNK, CYCLE (1 CYCLE)
     Route: 042
     Dates: start: 20171103, end: 20171106
  26. SODIUM CHLORIDE [Suspect]
     Active Substance: SODIUM CHLORIDE
     Dosage: UNK, 1 CYCLE
     Route: 042
     Dates: start: 20171106, end: 20171106
  27. SODIUM CHLORIDE [Suspect]
     Active Substance: SODIUM CHLORIDE
     Dosage: UNK (1 CYCLE)
     Route: 042
     Dates: start: 20171106, end: 20171106
  28. SODIUM CHLORIDE [Suspect]
     Active Substance: SODIUM CHLORIDE
     Dosage: UNK
     Route: 042
     Dates: start: 20171107
  29. SODIUM CHLORIDE [Suspect]
     Active Substance: SODIUM CHLORIDE
     Dosage: UNK
     Route: 042
     Dates: start: 20171107
  30. SODIUM CHLORIDE [Suspect]
     Active Substance: SODIUM CHLORIDE
     Dosage: UNK, (START DATE: 10-NOV-2017)
     Route: 042
  31. SODIUM CHLORIDE [Suspect]
     Active Substance: SODIUM CHLORIDE
     Dosage: UNK (1 CYCLE, START DATE: 10-NOV-2017)
     Route: 042
     Dates: end: 20171110
  32. SODIUM CHLORIDE [Suspect]
     Active Substance: SODIUM CHLORIDE
     Dosage: UNK, (1 CYCLE)
     Route: 065
     Dates: start: 20171103, end: 20171103
  33. SODIUM CHLORIDE [Suspect]
     Active Substance: SODIUM CHLORIDE
     Dosage: UNK, (1 CYCLE)
     Route: 042
     Dates: start: 20171103, end: 20171106
  34. SODIUM CHLORIDE [Suspect]
     Active Substance: SODIUM CHLORIDE
     Dosage: UNK, (1 CYCLE)
     Route: 042
     Dates: start: 20171103, end: 20171106
  35. SODIUM CHLORIDE [Suspect]
     Active Substance: SODIUM CHLORIDE
     Dosage: UNK, 1 CYCLE
     Route: 042
     Dates: start: 20171106, end: 20171106
  36. SODIUM CHLORIDE [Suspect]
     Active Substance: SODIUM CHLORIDE
     Dosage: UNK, 1 CYCLE
     Route: 042
     Dates: start: 20171106, end: 20171106
  37. SODIUM CHLORIDE [Suspect]
     Active Substance: SODIUM CHLORIDE
     Dosage: UNK
     Route: 042
     Dates: start: 20171107
  38. SODIUM CHLORIDE [Suspect]
     Active Substance: SODIUM CHLORIDE
     Dosage: UNK
     Route: 065
     Dates: start: 20171103
  39. SODIUM CHLORIDE [Suspect]
     Active Substance: SODIUM CHLORIDE
     Dosage: UNK (1 CYCLE), (START DATE: 10-NOV-2017)
     Route: 065
     Dates: end: 20171110
  40. SODIUM CHLORIDE [Suspect]
     Active Substance: SODIUM CHLORIDE
     Dosage: UNK, (1 CYCLE)
     Route: 065
     Dates: start: 20171103
  41. SODIUM CHLORIDE [Suspect]
     Active Substance: SODIUM CHLORIDE
     Indication: Medication dilution
     Dosage: UNK
     Route: 042
     Dates: start: 20171103
  42. FENTANYL [Suspect]
     Active Substance: FENTANYL
     Indication: Product used for unknown indication
     Dosage: 12 MILLIGRAM/START DATE:08-NOV-2017
     Route: 062
  43. FENTANYL [Suspect]
     Active Substance: FENTANYL
     Dosage: 1 DOSAGE FORM, QH/START DATE:08-NOV-2017
     Route: 062
  44. FENTANYL [Suspect]
     Active Substance: FENTANYL
     Dosage: UNK, IN 1 HOUR (START DATE:08-NOV-2017 )
     Route: 062
  45. FENTANYL [Suspect]
     Active Substance: FENTANYL
     Dosage: 1 DOSAGE FORM, QH/START DATE:08-NOV-2017
     Route: 062
  46. FENTANYL [Suspect]
     Active Substance: FENTANYL
     Dosage: 12 MICROGRAM, QH (START DATE: 08-NOV-2017)
     Route: 062
  47. FENTANYL [Suspect]
     Active Substance: FENTANYL
     Dosage: UNK, IN 1 HOUR (START DATE:08-NOV-2017 )
     Route: 062
  48. FENTANYL [Suspect]
     Active Substance: FENTANYL
     Dosage: 12 MICROGRAM, (START DATE: 08-NOV-2017)
     Route: 062
  49. FENTANYL [Suspect]
     Active Substance: FENTANYL
     Dosage: 1 DOSAGE FORM, QH, (START DATE:08-NOV-2017)
     Route: 062
  50. FENTANYL [Suspect]
     Active Substance: FENTANYL
     Dosage: 1 DOSAGE FORM, QH, (START DATE:08-NOV-2017)
     Route: 062
  51. FENTANYL [Suspect]
     Active Substance: FENTANYL
     Dosage: 12 MILLIGRAM, (START DATE:08-NOV-2017)
     Route: 062
  52. BORTEZOMIB [Suspect]
     Active Substance: BORTEZOMIB
     Indication: Plasma cell leukaemia
     Dosage: 1.8 MILLIGRAM
     Route: 058
  53. BORTEZOMIB [Suspect]
     Active Substance: BORTEZOMIB
     Dosage: 1.8 MILLIGRAM
     Route: 058
  54. BORTEZOMIB [Suspect]
     Active Substance: BORTEZOMIB
     Dosage: 1.8 MILLIGRAM, (START DATE: 10-NOV-2017)
     Route: 058
     Dates: end: 20171114
  55. BORTEZOMIB [Suspect]
     Active Substance: BORTEZOMIB
     Dosage: 1.8 MILLIGRAM (FROM 07-NOV-2017 TO NOV-2017)
     Route: 058
     Dates: start: 20171107
  56. BORTEZOMIB [Suspect]
     Active Substance: BORTEZOMIB
     Dosage: 1.8 MILLIGRAM/ START DATE:10-NOV-2017
     Route: 065
     Dates: end: 20171114
  57. BORTEZOMIB [Suspect]
     Active Substance: BORTEZOMIB
     Dosage: 1.8 MILLIGRAM
     Route: 065
     Dates: end: 20171114
  58. BORTEZOMIB [Suspect]
     Active Substance: BORTEZOMIB
     Dosage: 1.8 MILLIGRAM
     Route: 058
     Dates: start: 20171103, end: 20171103
  59. BORTEZOMIB [Suspect]
     Active Substance: BORTEZOMIB
     Dosage: 1.8 MILLIGRAM, (FROM 07-NOV-2017 TO NOV-2017)
     Route: 058
     Dates: start: 20171107
  60. BORTEZOMIB [Suspect]
     Active Substance: BORTEZOMIB
     Dosage: 1.3 MILLIGRAM/SQ. METER (EVERY CYCLE)
     Route: 058
     Dates: start: 20171106
  61. BORTEZOMIB [Suspect]
     Active Substance: BORTEZOMIB
     Dosage: 1.3 MILLIGRAM/SQ. METER
     Route: 058
     Dates: start: 20171106, end: 20171106
  62. BORTEZOMIB [Suspect]
     Active Substance: BORTEZOMIB
     Dosage: 1.3 MILLIGRAM/SQ. METER (EVERY CYCLE, START DATE: 10-NOV-2017)
     Route: 058
     Dates: end: 20171110
  63. BORTEZOMIB [Suspect]
     Active Substance: BORTEZOMIB
     Dosage: 1.8 MILLIGRAM/ START DATE:10-NOV-2017
     Route: 058
     Dates: end: 20171114
  64. BORTEZOMIB [Suspect]
     Active Substance: BORTEZOMIB
     Dosage: 1.8 MILLIGRAM
     Route: 058
     Dates: start: 20171103, end: 20171103
  65. BORTEZOMIB [Suspect]
     Active Substance: BORTEZOMIB
     Dosage: START DATE:07-NOV-2017/1.8 MILLIGRAM
     Route: 058
     Dates: start: 20171107
  66. BORTEZOMIB [Suspect]
     Active Substance: BORTEZOMIB
     Dosage: 1.8 MILLIGRAM/ START DATE:10-NOV-2017
     Route: 058
     Dates: end: 20171114
  67. DEXAMETHASONE [Suspect]
     Active Substance: DEXAMETHASONE
     Indication: Plasma cell leukaemia
     Dosage: 20 MG DAILY, (MEDICATION ERROR, MISUSE, ABUSE, OFF LABEL USE)
     Route: 065
     Dates: start: 20171102, end: 20171106
  68. DEXAMETHASONE [Suspect]
     Active Substance: DEXAMETHASONE
     Dosage: 20 MILLIGRAM
     Route: 065
  69. DEXAMETHASONE [Suspect]
     Active Substance: DEXAMETHASONE
     Dosage: 20 MILLIGRAM, QD
     Route: 065
  70. DEXAMETHASONE [Suspect]
     Active Substance: DEXAMETHASONE
     Dosage: 100 MILLIGRAM
     Route: 065
  71. DEXAMETHASONE [Suspect]
     Active Substance: DEXAMETHASONE
     Dosage: UNK
     Route: 065
  72. ALLOPURINOL [Suspect]
     Active Substance: ALLOPURINOL
     Indication: Product used for unknown indication
     Dosage: 300 MILLIGRAM, QD
     Route: 065
     Dates: start: 20171104, end: 20171120
  73. ALLOPURINOL [Suspect]
     Active Substance: ALLOPURINOL
     Dosage: 300 MILLIGRAM (THERAPY IS ONGOING)
     Route: 065
     Dates: start: 20171120
  74. ALLOPURINOL [Suspect]
     Active Substance: ALLOPURINOL
     Dosage: 30 MILLIGRAM, DAILY MEDICATION ERROR, MISUSE, ABUSE, OFF LABEL USE
     Route: 065
     Dates: start: 20171104, end: 20171120
  75. ALLOPURINOL [Suspect]
     Active Substance: ALLOPURINOL
     Dosage: 30 MILLIGRAM, QD
     Route: 065
     Dates: start: 20171104, end: 20171120
  76. ALLOPURINOL [Suspect]
     Active Substance: ALLOPURINOL
     Dosage: 300 MILLIGRAM, QD
     Route: 065
  77. ALLOPURINOL [Suspect]
     Active Substance: ALLOPURINOL
     Dosage: 300 MILLIGRAM
     Route: 065
     Dates: start: 20171104
  78. ALLOPURINOL [Suspect]
     Active Substance: ALLOPURINOL
     Dosage: 120 MILLIGRAM
     Route: 065
  79. ALLOPURINOL [Suspect]
     Active Substance: ALLOPURINOL
     Dosage: UNK (UNSPECIFIED 16 DAYS)
     Route: 065
     Dates: start: 20171120
  80. ALLOPURINOL [Suspect]
     Active Substance: ALLOPURINOL
     Dosage: 300 MILLIGRAM (THERAPY IS ONGOING)
     Route: 065
     Dates: start: 20171120
  81. ALLOPURINOL [Suspect]
     Active Substance: ALLOPURINOL
     Dosage: 120 MILLIGRAM (UNK, UNSPECIFIED 16 DAYS)
     Route: 065
     Dates: start: 20171120
  82. ALLOPURINOL [Suspect]
     Active Substance: ALLOPURINOL
     Dosage: UNK
     Route: 065
  83. ALLOPURINOL [Suspect]
     Active Substance: ALLOPURINOL
     Dosage: 300 MILLIGRAM DAILY
     Route: 065
     Dates: start: 20171104, end: 20171120
  84. ALLOPURINOL [Suspect]
     Active Substance: ALLOPURINOL
     Dosage: UNK, (DOSAGE FORM: UNSPECIFIED)
     Route: 065
     Dates: end: 20171120
  85. ALLOPURINOL [Suspect]
     Active Substance: ALLOPURINOL
     Dosage: 300 MILLIGRAM DAILY, (MEDICATION ERROR, MISUSE, ABUSE, OFF LABEL USE)
     Route: 065
     Dates: start: 20171104
  86. ALLOPURINOL [Suspect]
     Active Substance: ALLOPURINOL
     Dosage: 300 MILLIGRAM
     Route: 065
     Dates: start: 20181120
  87. ALLOPURINOL [Suspect]
     Active Substance: ALLOPURINOL
     Dosage: 30 MG, QD
     Route: 065
     Dates: start: 20171120
  88. MELPHALAN [Suspect]
     Active Substance: MELPHALAN
     Indication: Plasma cell leukaemia
     Dosage: 14 MILLIGRAM, QD
     Route: 065
     Dates: start: 20171103, end: 20171106
  89. MELPHALAN [Suspect]
     Active Substance: MELPHALAN
     Dosage: 14 MILLIGRAM, QD, 1 CYCLE
     Route: 065
     Dates: start: 20171107, end: 20171110
  90. MELPHALAN [Suspect]
     Active Substance: MELPHALAN
     Dosage: UNK, (1 CYCLE, START DATE: 10-NOV-2017)
     Route: 065
     Dates: end: 20171114
  91. MELPHALAN [Suspect]
     Active Substance: MELPHALAN
     Dosage: UNK
     Route: 065
     Dates: start: 20171106, end: 20171106
  92. MELPHALAN [Suspect]
     Active Substance: MELPHALAN
     Dosage: 10 MILLIGRAM, QD
     Route: 065
  93. MELPHALAN [Suspect]
     Active Substance: MELPHALAN
     Dosage: UNK,MONTHS
     Route: 065
     Dates: start: 201711, end: 20171107
  94. MELPHALAN [Suspect]
     Active Substance: MELPHALAN
     Dosage: 56 MILLIGRAM, QD
     Route: 065
     Dates: start: 20171106, end: 20171106
  95. MELPHALAN [Suspect]
     Active Substance: MELPHALAN
     Dosage: 14 MILLIGRAM, 1 CYCLE
     Route: 065
  96. MELPHALAN [Suspect]
     Active Substance: MELPHALAN
     Dosage: 14 MILLIGRAM
     Route: 065
     Dates: start: 201711, end: 20171107
  97. MELPHALAN [Suspect]
     Active Substance: MELPHALAN
     Dosage: 14 MILLIGRAM, QD, (START DATE: 10-NOV-2017)
     Route: 065
     Dates: end: 20171110
  98. MELPHALAN [Suspect]
     Active Substance: MELPHALAN
     Dosage: UNK
     Route: 065
     Dates: start: 20171103, end: 20171103
  99. MELPHALAN [Suspect]
     Active Substance: MELPHALAN
     Dosage: UNK, (START DATE: 10-NOV-2017)
     Route: 065
     Dates: end: 20171110
  100. MELPHALAN [Suspect]
     Active Substance: MELPHALAN
     Dosage: 14 MILLIGRAM, TID
     Route: 065
     Dates: start: 20171103, end: 20171106
  101. MELPHALAN [Suspect]
     Active Substance: MELPHALAN
     Dosage: 14 MILLIGRAM, QD
     Route: 065
     Dates: start: 20171103, end: 20171103
  102. MELPHALAN [Suspect]
     Active Substance: MELPHALAN
     Dosage: 14 MILLIGRAM, QD
     Route: 065
     Dates: start: 20171107, end: 20171110
  103. MELPHALAN [Suspect]
     Active Substance: MELPHALAN
     Dosage: 14 MILLIGRAM, (START DATE: 10-NOV-2017)
     Route: 065
  104. MELPHALAN [Suspect]
     Active Substance: MELPHALAN
     Dosage: 14 MILLIGRAM, (START DATE: 10-NOV-2017)
     Route: 065
     Dates: end: 20171114
  105. MELPHALAN [Suspect]
     Active Substance: MELPHALAN
     Dosage: UNK, (START DATE: 10-NOV-2017)
     Route: 065
     Dates: end: 20171114
  106. MELPHALAN [Suspect]
     Active Substance: MELPHALAN
     Dosage: 14 MILLIGRAM
     Route: 065
     Dates: start: 201711, end: 20171107
  107. MELPHALAN [Suspect]
     Active Substance: MELPHALAN
     Dosage: 14 MILLIGRAM, QD
     Route: 065
     Dates: start: 20171107, end: 20171110
  108. MELPHALAN [Suspect]
     Active Substance: MELPHALAN
     Dosage: 14 MILLIGRAM, QD
     Route: 065
     Dates: start: 20171106, end: 20171106
  109. VELCADE [Suspect]
     Active Substance: BORTEZOMIB
     Indication: Plasma cell leukaemia
     Dosage: 1.8 MILLIGRAM
     Route: 058
     Dates: start: 20171103, end: 20171103
  110. VELCADE [Suspect]
     Active Substance: BORTEZOMIB
     Dosage: 1.8 MILLIGRAM/ START DATE:07-NOV-2017
     Route: 058
     Dates: start: 20171107
  111. VELCADE [Suspect]
     Active Substance: BORTEZOMIB
     Dosage: 1.8 MILLIGRAM/ START DATE:10-NOV-2017
     Route: 058
     Dates: end: 20171114
  112. VELCADE [Suspect]
     Active Substance: BORTEZOMIB
     Dosage: 1.3 MILLIGRAM/SQ. METER, CYCLE
     Route: 058
     Dates: start: 20171106, end: 20171106
  113. VELCADE [Suspect]
     Active Substance: BORTEZOMIB
     Dosage: 1.3 MILLIGRAM/SQ. METER, CYCLE (START DATE: 03-NOV-2017)
     Route: 058
     Dates: start: 20171103, end: 20171103
  114. VELCADE [Suspect]
     Active Substance: BORTEZOMIB
     Dosage: 1.3 MILLIGRAM/SQ. METER, CYCLE/START DATE:10-NOV-2017
     Route: 058
     Dates: end: 20171110
  115. VELCADE [Suspect]
     Active Substance: BORTEZOMIB
     Dosage: 1.8 MILLIGRAM
     Route: 058
  116. VELCADE [Suspect]
     Active Substance: BORTEZOMIB
     Dosage: 1.3 MILLIGRAM/SQ. METER, CYCLE
     Route: 058
     Dates: start: 20171106, end: 20171106
  117. VELCADE [Suspect]
     Active Substance: BORTEZOMIB
     Dosage: 1.3 MILLIGRAM/SQ. METER, CYCLE
     Route: 058
     Dates: end: 20171103
  118. VELCADE [Suspect]
     Active Substance: BORTEZOMIB
     Dosage: 1.3 MG/SQ. METER, CYCLE/START DATE:10-NOV-2017
     Route: 058
     Dates: end: 20171110
  119. VELCADE [Suspect]
     Active Substance: BORTEZOMIB
     Dosage: 1.8 MG/SQ. METER (1.8 MG/M2 (LYOPHILIZED POWDER, START DATE: 10-NOV-2017)
     Route: 058
     Dates: end: 20171114
  120. VELCADE [Suspect]
     Active Substance: BORTEZOMIB
     Dosage: 2 MG/SQ. METER (LYOPHILIZED POWDER, START DATE: 10-NOV-2017)
     Route: 058
     Dates: end: 20171114
  121. VELCADE [Suspect]
     Active Substance: BORTEZOMIB
     Dosage: 1.3 MG/SQ. METER (1.3 MG/M2, 1 CYCLE, START DATE: 10-NOV-2017)
     Route: 058
     Dates: end: 20171110
  122. VELCADE [Suspect]
     Active Substance: BORTEZOMIB
     Dosage: (1.8 MG/M2, 1 CYCLE)/START DATE:03-NOV-2017)
     Route: 058
     Dates: start: 20171103, end: 20171103
  123. VELCADE [Suspect]
     Active Substance: BORTEZOMIB
     Dosage: 1.8 MG/SQ. METER (1.8 MG/M2)/START DATE:07-NOV-2017
     Route: 058
     Dates: end: 201711
  124. VELCADE [Suspect]
     Active Substance: BORTEZOMIB
     Dosage: 2 MILLIGRAM/SQ. METER
     Route: 058
     Dates: start: 20171107
  125. VELCADE [Suspect]
     Active Substance: BORTEZOMIB
     Dosage: 1.3 MILLIGRAM/SQ. METER, CYCLE (1 CYCLE, CYCLICAL)
     Route: 058
     Dates: start: 20171103, end: 20171103
  126. VELCADE [Suspect]
     Active Substance: BORTEZOMIB
     Dosage: 1.8 MILLIGRAM, (START DATE:10-NOV-2017)
     Route: 058
     Dates: end: 20171114
  127. VELCADE [Suspect]
     Active Substance: BORTEZOMIB
     Dosage: 1.3 MILLIGRAM/SQ. METER, CYCLE
     Route: 058
  128. VELCADE [Suspect]
     Active Substance: BORTEZOMIB
     Dosage: 1.3 MILLIGRAM/SQ. METER, CYCLICAL
     Route: 058
     Dates: start: 20171103, end: 20171103
  129. VELCADE [Suspect]
     Active Substance: BORTEZOMIB
     Dosage: 1.3 MILLIGRAM/SQ. METER, CYCLICAL
     Route: 058
     Dates: start: 20171103, end: 20171103
  130. VELCADE [Suspect]
     Active Substance: BORTEZOMIB
     Dosage: UNK
     Route: 065
  131. VELCADE [Suspect]
     Active Substance: BORTEZOMIB
     Dosage: 1.8 MILLIGRAM
     Route: 058
     Dates: start: 20171107
  132. VELCADE [Suspect]
     Active Substance: BORTEZOMIB
     Dosage: UNK (UNK (LYOPHILIZED POWDER))
     Route: 058
  133. VELCADE [Suspect]
     Active Substance: BORTEZOMIB
     Dosage: 1.8 MILLIGRAM
     Route: 065
  134. PREDNISONE [Suspect]
     Active Substance: PREDNISONE
     Indication: Plasma cell leukaemia
     Dosage: 70 MILLIGRAM, QD
     Route: 065
     Dates: start: 20171103, end: 20171103
  135. PREDNISONE [Suspect]
     Active Substance: PREDNISONE
     Dosage: 70 MILLIGRAM, QD. 1 CYCLE
     Route: 065
     Dates: start: 20171106, end: 20171106
  136. PREDNISONE [Suspect]
     Active Substance: PREDNISONE
     Dosage: 70 MILLIGRAM, ONCE A DAY
     Route: 065
     Dates: start: 20171103, end: 20171103
  137. PREDNISONE [Suspect]
     Active Substance: PREDNISONE
     Dosage: 70 MILLIGRAM (70 MG)
     Route: 065
  138. PREDNISONE [Suspect]
     Active Substance: PREDNISONE
     Dosage: 70 MILLIGRAM, QD (70 MG, QD (1 CYCLE))
     Route: 065
  139. BENDROFLUMETHIAZIDE [Suspect]
     Active Substance: BENDROFLUMETHIAZIDE
     Indication: Product used for unknown indication
     Dosage: 25 MILLIGRAM, QD
     Route: 065
  140. BENDROFLUMETHIAZIDE [Suspect]
     Active Substance: BENDROFLUMETHIAZIDE
     Dosage: 2.5 MILLIGRAM, ONCE A DAY
     Route: 065
  141. BENDROFLUMETHIAZIDE [Suspect]
     Active Substance: BENDROFLUMETHIAZIDE
     Dosage: 2 MILLIGRAM, ONCE A DAY
     Route: 065
     Dates: start: 20171103, end: 20171103
  142. BENDROFLUMETHIAZIDE [Suspect]
     Active Substance: BENDROFLUMETHIAZIDE
     Dosage: 10 MILLIGRAM, QD
     Route: 065
  143. BENDROFLUMETHIAZIDE [Suspect]
     Active Substance: BENDROFLUMETHIAZIDE
     Dosage: 2 MILLIGRAM, QD (5 DAYS), (START DATE: 10-NOV-2017)
     Route: 065
     Dates: end: 20171114
  144. BENDROFLUMETHIAZIDE [Suspect]
     Active Substance: BENDROFLUMETHIAZIDE
     Dosage: UNK (1.8 MG/M2 Q_CYCLE / 1.3 MG/M2 )
     Route: 065
  145. BENDROFLUMETHIAZIDE [Suspect]
     Active Substance: BENDROFLUMETHIAZIDE
     Dosage: 2 MILLIGRAM, QD
     Route: 065
     Dates: start: 20171107
  146. BENDROFLUMETHIAZIDE [Suspect]
     Active Substance: BENDROFLUMETHIAZIDE
     Dosage: 3 MILLIGRAM, QD
     Route: 065
  147. BENDROFLUMETHIAZIDE [Suspect]
     Active Substance: BENDROFLUMETHIAZIDE
     Dosage: 2 MILLIGRAM, ONCE A DAY
     Route: 065
     Dates: start: 20171103, end: 20171103
  148. BENDROFLUMETHIAZIDE [Suspect]
     Active Substance: BENDROFLUMETHIAZIDE
     Dosage: 3 MILLIGRAM
     Route: 065
  149. FENTANYL CITRATE [Suspect]
     Active Substance: FENTANYL CITRATE
     Indication: Product used for unknown indication
     Dosage: 12 MICROGRAM, 1HR, (START DATE:08-NOV-2017)
     Route: 055
  150. FENTANYL CITRATE [Suspect]
     Active Substance: FENTANYL CITRATE
     Dosage: 12 UG (12 UG/INHAL)
     Route: 055
  151. DEXAMETHASONE [Suspect]
     Active Substance: DEXAMETHASONE
     Indication: Product used for unknown indication
     Dosage: 20 MG, QD, (DOSAGE FORM: UNSPECIFIED)
     Route: 065
     Dates: start: 20171102, end: 20171106
  152. DEXAMETHASONE [Suspect]
     Active Substance: DEXAMETHASONE
     Dosage: 20 MILLIGRAM, QD
     Route: 065
  153. SERTRALINE [Suspect]
     Active Substance: SERTRALINE HYDROCHLORIDE
     Indication: Product used for unknown indication
     Dosage: 50 MILLIGRAM, QD (50 MILLIGRAM, ONCE A DAY)
     Route: 065
  154. SERTRALINE [Suspect]
     Active Substance: SERTRALINE HYDROCHLORIDE
     Indication: Product used for unknown indication
     Dosage: UNK, (AS NECESSARY)
     Route: 042
     Dates: start: 20171103, end: 20171106
  155. ALLOPURINOL [Suspect]
     Active Substance: ALLOPURINOL
     Indication: Product used for unknown indication
     Dosage: 300 MILLIGRAM, QD
     Route: 065
  156. DEXAMETHASONE [Concomitant]
     Active Substance: DEXAMETHASONE
     Indication: Plasma cell leukaemia
     Dosage: 20 MILLIGRAM
     Route: 065
  157. DEXAMETHASONE [Concomitant]
     Active Substance: DEXAMETHASONE
     Dosage: 20 MILLIGRAM, QD
     Route: 065
     Dates: start: 20171102, end: 20171106
  158. DEXAMETHASONE [Concomitant]
     Active Substance: DEXAMETHASONE
     Dosage: 10 MILLIGRAM, AM EVERY MORNING
     Route: 065
  159. DEXAMETHASONE [Concomitant]
     Active Substance: DEXAMETHASONE
     Dosage: 10 MILLIGRAM
     Route: 065
  160. ALLOPURINOL [Concomitant]
     Active Substance: ALLOPURINOL
     Indication: Product used for unknown indication
     Dosage: 30 MILLIGRAM
     Route: 065
  161. ALLOPURINOL [Concomitant]
     Active Substance: ALLOPURINOL
     Dosage: 30 MILLIGRAM, QD,
     Route: 065
     Dates: start: 20171104, end: 20171120
  162. BENDROFLUMETHIAZIDE [Concomitant]
     Active Substance: BENDROFLUMETHIAZIDE
     Indication: Product used for unknown indication
     Dosage: 2.5 MILLIGRAM, ONCE A DAY
     Route: 065
  163. METOCLOPRAMIDE [Concomitant]
     Active Substance: METOCLOPRAMIDE
     Indication: Product used for unknown indication
     Dosage: 10 MILLIGRAM
     Route: 065
  164. METOCLOPRAMIDE [Concomitant]
     Active Substance: METOCLOPRAMIDE
     Dosage: 20 MILLIGRAM, QD
     Route: 065
  165. METOCLOPRAMIDE [Concomitant]
     Active Substance: METOCLOPRAMIDE
     Dosage: 20 MILLIGRAM, QD
     Route: 065
  166. METOCLOPRAMIDE [Concomitant]
     Active Substance: METOCLOPRAMIDE
     Dosage: 20 MILLIGRAM, QD, (AS NECESSARY)
     Route: 065
  167. OMEPRAZOLE [Concomitant]
     Active Substance: OMEPRAZOLE
     Indication: Product used for unknown indication
     Dosage: 20 MILLIGRAM, QD
     Route: 065
  168. OMEPRAZOLE [Concomitant]
     Active Substance: OMEPRAZOLE
     Dosage: 10 MILLIGRAM, QD
     Route: 065
  169. RAMIPRIL [Concomitant]
     Active Substance: RAMIPRIL
     Indication: Product used for unknown indication
     Dosage: 10 MG, ONCE A DAY, DOSAGE FORM: UNSPECIFIED,EVERY MORNING
     Route: 065
  170. SERTRALINE [Concomitant]
     Active Substance: SERTRALINE HYDROCHLORIDE
     Indication: Product used for unknown indication
     Dosage: 50 MILLIGRAM, QD
     Route: 065
  171. DEXAMETHASONE [Concomitant]
     Active Substance: DEXAMETHASONE
     Indication: Plasma cell leukaemia
     Dosage: UNK
     Route: 065

REACTIONS (14)
  - Disturbance in social behaviour [Recovered/Resolved]
  - Abnormal behaviour [Recovered/Resolved]
  - Paranoia [Recovered/Resolved]
  - Emotional distress [Not Recovered/Not Resolved]
  - Confusional state [Recovered/Resolved]
  - Hallucination [Recovered/Resolved]
  - Disorientation [Recovered/Resolved]
  - Agitation [Recovered/Resolved]
  - Product use in unapproved indication [Unknown]
  - Off label use [Unknown]
  - Incorrect route of product administration [Unknown]
  - Medication error [Unknown]
  - Intentional product misuse [Unknown]
  - Drug abuse [Unknown]

NARRATIVE: CASE EVENT DATE: 20171103
